FAERS Safety Report 7864259-0 (Version None)
Quarter: 2011Q4

REPORT INFORMATION
  Report Type: 
  Country: None (occurrence: None)
  Receive Date: 20111028
  Receipt Date: 20111019
  Transmission Date: 20120403
  Serious: Yes (Hospitalization)
  Sender: FDA-Public Use
  Company Number: JP-AMGEN-JPNCT2011049974

PATIENT
  Age: 59 Year
  Sex: Male
  Weight: 85 kg

DRUGS (15)
  1. PANITUMUMAB [Suspect]
     Indication: COLORECTAL CANCER
     Dosage: 6 MG/KG, Q2WK
     Route: 041
     Dates: start: 20100805, end: 20101105
  2. PANITUMUMAB [Suspect]
     Dosage: 6 MG/KG, Q2WK
     Route: 041
     Dates: start: 20110113, end: 20110113
  3. LEVOLEUCOVORIN CALCIUM [Concomitant]
     Indication: COLORECTAL CANCER
     Dosage: 225 MG, Q2WK
     Route: 041
     Dates: start: 20100805, end: 20110519
  4. PANITUMUMAB [Suspect]
     Dosage: 6 MG/KG, Q2WK
     Route: 041
     Dates: start: 20101202, end: 20101216
  5. PANITUMUMAB [Suspect]
     Dosage: 6 MG/KG, Q2WK
     Route: 041
     Dates: start: 20110303, end: 20110427
  6. IRINOTECAN HCL [Concomitant]
     Indication: COLORECTAL CANCER
     Dosage: 180 MG, Q2WK
     Route: 041
     Dates: start: 20100805, end: 20110519
  7. FLUOROURACIL [Concomitant]
     Dosage: 2950 MG, Q2WK
     Route: 041
     Dates: start: 20100805, end: 20110519
  8. ANTIHISTAMINES [Concomitant]
     Indication: PROPHYLAXIS
     Dosage: UNK
     Route: 065
  9. ASPIRIN [Concomitant]
     Dosage: UNK
     Route: 048
  10. PANITUMUMAB [Suspect]
     Dosage: 6 MG/KG, Q2WK
     Route: 041
     Dates: start: 20110519, end: 20110519
  11. MINOCYCLINE HCL [Concomitant]
     Dosage: UNK
     Route: 048
  12. TENORMIN [Concomitant]
     Dosage: UNK
     Route: 048
  13. FLUOROURACIL [Concomitant]
     Indication: COLORECTAL CANCER
     Dosage: 450 MG, Q2WK
     Route: 040
     Dates: start: 20100805, end: 20110519
  14. ADALAT [Concomitant]
     Dosage: UNK
     Route: 048
  15. OLMESARTAN MEDOXOMIL [Concomitant]
     Dosage: UNK
     Route: 048

REACTIONS (7)
  - ARTHRALGIA [None]
  - LEUKOPENIA [None]
  - HYPOMAGNESAEMIA [None]
  - DERMATITIS ACNEIFORM [None]
  - PUNCTATE KERATITIS [None]
  - CATARACT [None]
  - HYPOCALCAEMIA [None]
